FAERS Safety Report 13586349 (Version 1)
Quarter: 2017Q2

REPORT INFORMATION
  Report Type: Spontaneous
  Country: FR (occurrence: FR)
  Receive Date: 20170526
  Receipt Date: 20170526
  Transmission Date: 20170830
  Serious: Yes (Disabling)
  Sender: FDA-Public Use
  Company Number: FR-TEVA-771391ROM

PATIENT
  Age: 46 Year
  Sex: Female
  Weight: 52 kg

DRUGS (2)
  1. OFLOXACINE TEVA 200 MG [Suspect]
     Active Substance: OFLOXACIN
     Indication: URINARY TRACT INFECTION
     Dosage: 2 DOSAGE FORMS DAILY;
     Route: 065
     Dates: start: 20170513, end: 20170513
  2. LEVOTHYROX 25 MCG [Concomitant]
     Active Substance: LEVOTHYROXINE

REACTIONS (4)
  - Musculoskeletal stiffness [Unknown]
  - Abasia [Unknown]
  - Disability [Unknown]
  - Dyspnoea [Recovered/Resolved]

NARRATIVE: CASE EVENT DATE: 20170513
